FAERS Safety Report 9952774 (Version 1)
Quarter: 2014Q1

REPORT INFORMATION
  Report Type: Spontaneous
  Country: US (occurrence: US)
  Receive Date: 20140304
  Receipt Date: 20140304
  Transmission Date: 20141002
  Serious: No
  Sender: FDA-Public Use
  Company Number: US-AMGEN-USASP2014006436

PATIENT
  Age: 70 Year
  Sex: Female

DRUGS (1)
  1. ENBREL [Suspect]
     Indication: PSORIASIS
     Dosage: UNK, QMO
     Route: 065
     Dates: start: 20120823, end: 201312

REACTIONS (6)
  - Pruritus [Recovered/Resolved]
  - Rhinorrhoea [Recovered/Resolved]
  - Cough [Recovered/Resolved]
  - Lethargy [Recovered/Resolved]
  - Staphylococcal infection [Recovered/Resolved]
  - Nasopharyngitis [Recovered/Resolved]
